FAERS Safety Report 12762151 (Version 1)
Quarter: 2016Q3

REPORT INFORMATION
  Report Type: Spontaneous
  Country: JP (occurrence: JP)
  Receive Date: 20160920
  Receipt Date: 20160920
  Transmission Date: 20161109
  Serious: Yes (Other)
  Sender: FDA-Public Use
  Company Number: JP-PFIZER INC-2016422572

PATIENT
  Sex: Male

DRUGS (2)
  1. XALATAN [Suspect]
     Active Substance: LATANOPROST
     Dosage: 2 GTT, DAILY
     Route: 047
  2. XALATAN [Suspect]
     Active Substance: LATANOPROST
     Indication: GLAUCOMA
     Dosage: 1 GTT, DAILY
     Route: 047

REACTIONS (6)
  - Hypertrichosis [Unknown]
  - Incorrect dose administered [Unknown]
  - Rhinorrhoea [Unknown]
  - Furuncle [Unknown]
  - Vocal cord disorder [Unknown]
  - Dysphonia [Unknown]
